FAERS Safety Report 5641984-3 (Version None)
Quarter: 2008Q1

REPORT INFORMATION
  Report Type: 
  Country: None (occurrence: None)
  Receive Date: 20080227
  Receipt Date: 20080220
  Transmission Date: 20080703
  Serious: No
  Sender: FDA-Public Use
  Company Number: US-BAXTER-2008BH001221

PATIENT
  Sex: Female
  Weight: 66 kg

DRUGS (1)
  1. HEPARIN SODIUM [Suspect]
     Indication: PROPHYLAXIS
     Route: 033

REACTIONS (3)
  - BLOODY PERITONEAL EFFLUENT [None]
  - MENORRHAGIA [None]
  - MENSTRUATION IRREGULAR [None]
